FAERS Safety Report 18701940 (Version 2)
Quarter: 2022Q4

REPORT INFORMATION
  Report Type: Spontaneous
  Country: BR (occurrence: BR)
  Receive Date: 20210105
  Receipt Date: 20221128
  Transmission Date: 20230113
  Serious: Yes (Other)
  Sender: FDA-Public Use
  Company Number: None

PATIENT
  Age: 55 Year
  Sex: Male

DRUGS (5)
  1. PACLITAXEL [Suspect]
     Active Substance: PACLITAXEL
     Indication: Neoplasm
     Dosage: 13 CYCLES
     Route: 065
  2. CARBOPLATIN [Suspect]
     Active Substance: CARBOPLATIN
     Indication: Neoplasm
     Dosage: 13 CYCLES
     Route: 065
  3. ITRACONAZOLE [Concomitant]
     Active Substance: ITRACONAZOLE
     Indication: Chromoblastomycosis
     Dosage: 200 MILLIGRAM, QD COMBINATION...
     Route: 065
  4. ACITRETIN [Concomitant]
     Active Substance: ACITRETIN
     Indication: Chromoblastomycosis
     Dosage: 50 MILLIGRAM/KILOGRAM COMBINATION...
     Route: 065
  5. MODIK [Concomitant]
     Indication: Chromoblastomycosis
     Dosage: 50MG/G /QD; COMBINATION THERAPY...
     Route: 061

REACTIONS (1)
  - Drug ineffective [Unknown]
